FAERS Safety Report 26059086 (Version 1)
Quarter: 2025Q4

REPORT INFORMATION
  Report Type: Spontaneous
  Country: US (occurrence: US)
  Receive Date: 20251118
  Receipt Date: 20251118
  Transmission Date: 20260118
  Serious: No
  Sender: COLLEGIUM PHARMACEUTICAL
  Company Number: US-COLLEGIUM PHARMACEUTICAL, INC.-20250702356

PATIENT

DRUGS (4)
  1. BELBUCA [Suspect]
     Active Substance: BUPRENORPHINE HYDROCHLORIDE
     Indication: Pain
     Dosage: 900 MICROGRAM, BID (EVERY 12 HOURS)
     Route: 002
     Dates: start: 202507
  2. BELBUCA [Suspect]
     Active Substance: BUPRENORPHINE HYDROCHLORIDE
     Dosage: 900 MICROGRAM, BID (EVERY 12 HOURS)
     Route: 002
     Dates: start: 2024
  3. OXYCODONE [Concomitant]
     Active Substance: OXYCODONE
     Indication: Pain
     Dosage: 10 MILLIGRAM, PRN
     Route: 065
  4. UNSPECIFIED INGREDIENT [Concomitant]
     Active Substance: UNSPECIFIED INGREDIENT
     Indication: Analgesic therapy
     Dosage: UNK, UNKNOWN
     Route: 065

REACTIONS (4)
  - Drug ineffective [Unknown]
  - Incorrect route of product administration [Unknown]
  - Product adhesion issue [None]
  - Product solubility abnormal [None]

NARRATIVE: CASE EVENT DATE: 20250101
